FAERS Safety Report 4637812-5 (Version None)
Quarter: 2005Q2

REPORT INFORMATION
  Report Type: 
  Country: None (occurrence: None)
  Receive Date: 20050328
  Receipt Date: 20050208
  Transmission Date: 20051028
  Serious: No
  Sender: FDA-Public Use
  Company Number: USA050290253

PATIENT
  Age: 56 Year
  Sex: Female

DRUGS (5)
  1. STRATTERA [Suspect]
     Indication: ATTENTION DEFICIT/HYPERACTIVITY DISORDER
     Dosage: 18 MG DAY
     Dates: start: 20020101
  2. ACTIGALL [Concomitant]
  3. NEXIUM [Concomitant]
  4. MIACALCIN [Concomitant]
  5. EXCEDRIN (MIGRAINE) [Concomitant]

REACTIONS (1)
  - FLUSHING [None]
